FAERS Safety Report 16118651 (Version 1)
Quarter: 2019Q1

REPORT INFORMATION
  Report Type: Spontaneous
  Country: GB (occurrence: GB)
  Receive Date: 20190326
  Receipt Date: 20190326
  Transmission Date: 20190418
  Serious: Yes (Disabling)
  Sender: FDA-Public Use
  Company Number: PHHY2019GB065331

PATIENT
  Age: 67 Year
  Sex: Male
  Weight: 99.78 kg

DRUGS (1)
  1. CIPROFLOXACIN. [Suspect]
     Active Substance: CIPROFLOXACIN
     Indication: BRONCHITIS
     Dosage: 500 MG, QD
     Route: 048
     Dates: start: 20181209, end: 20181213

REACTIONS (9)
  - Eyelid ptosis [Unknown]
  - Gastrointestinal inflammation [Not Recovered/Not Resolved]
  - Urinary tract disorder [Unknown]
  - Diarrhoea [Not Recovered/Not Resolved]
  - Nephrolithiasis [Unknown]
  - Tendon rupture [Not Recovered/Not Resolved]
  - Prostatic disorder [Unknown]
  - Abdominal distension [Not Recovered/Not Resolved]
  - Tendonitis [Not Recovered/Not Resolved]

NARRATIVE: CASE EVENT DATE: 20190102
